FAERS Safety Report 6942943-0 (Version None)
Quarter: 2010Q3

REPORT INFORMATION
  Report Type: 
  Country: None (occurrence: None)
  Receive Date: 20100825
  Receipt Date: 20100825
  Transmission Date: 20110219
  Serious: Yes (Hospitalization)
  Sender: FDA-Public Use
  Company Number: None

PATIENT
  Age: 14 Year
  Sex: Female

DRUGS (1)
  1. BACTRIM [Suspect]
     Indication: URINARY TRACT INFECTION
     Dates: end: 20100624

REACTIONS (6)
  - DECREASED APPETITE [None]
  - FATIGUE [None]
  - HYPOPHAGIA [None]
  - MYALGIA [None]
  - PYREXIA [None]
  - RASH [None]
